FAERS Safety Report 4538955-7 (Version None)
Quarter: 2004Q4

REPORT INFORMATION
  Report Type: 
  Country: None (occurrence: None)
  Receive Date: 20041222
  Receipt Date: 20041203
  Transmission Date: 20050328
  Serious: Yes (Other)
  Sender: FDA-Public Use
  Company Number: USA031050362

PATIENT
  Age: 77 Year
  Sex: Female
  Weight: 45 kg

DRUGS (6)
  1. FORTEO [Suspect]
     Indication: OSTEOPOROSIS
     Dosage: 20 UG DAY
     Dates: start: 20030614
  2. ATENOLOL [Concomitant]
  3. ZANTAC [Concomitant]
  4. METAMUCIL-2 [Concomitant]
  5. VICODIN [Concomitant]
  6. EXTRA STRENGTH TYLENOL [Concomitant]

REACTIONS (8)
  - BLADDER CANCER [None]
  - BURNING SENSATION [None]
  - EYELID DISORDER [None]
  - FEELING ABNORMAL [None]
  - HEARING IMPAIRED [None]
  - MUSCLE CRAMP [None]
  - NAUSEA [None]
  - PAIN IN EXTREMITY [None]
